FAERS Safety Report 8536741-4 (Version None)
Quarter: 2012Q3

REPORT INFORMATION
  Report Type: 
  Country: None (occurrence: None)
  Receive Date: 20120725
  Receipt Date: 20120717
  Transmission Date: 20120928
  Serious: Yes (Other)
  Sender: FDA-Public Use
  Company Number: JP-VERTEX PHARMACEUTICALS INC.-AE-2012-008311

PATIENT
  Age: 53 Year
  Sex: Male

DRUGS (15)
  1. PEGINTERFERON ALFA-2B [Concomitant]
     Route: 058
     Dates: start: 20120627
  2. TELAVIC (TELAPREVIR) [Suspect]
     Route: 048
     Dates: start: 20120425, end: 20120508
  3. RIBAVIRIN [Concomitant]
     Route: 048
     Dates: start: 20120509
  4. PEGINTERFERON ALFA-2B [Concomitant]
     Route: 058
     Dates: start: 20120516, end: 20120626
  5. RIBAVIRIN [Concomitant]
     Indication: HEPATITIS C
     Route: 048
     Dates: start: 20120411, end: 20120501
  6. PEGINTERFERON ALFA-2B [Concomitant]
     Indication: HEPATITIS C
     Route: 058
     Dates: start: 20120411, end: 20120424
  7. PEGINTERFERON ALFA-2B [Concomitant]
     Route: 058
     Dates: start: 20120425, end: 20120501
  8. DIAZEPAM [Concomitant]
     Route: 048
  9. TELAVIC (TELAPREVIR) [Suspect]
     Indication: HEPATITIS C
     Route: 048
     Dates: start: 20120411, end: 20120424
  10. NITRAZEPAM [Concomitant]
     Route: 048
  11. TELAVIC (TELAPREVIR) [Suspect]
     Route: 048
     Dates: start: 20120509, end: 20120704
  12. RIBAVIRIN [Concomitant]
     Route: 048
     Dates: start: 20120502, end: 20120508
  13. PEGINTERFERON ALFA-2B [Concomitant]
     Route: 058
     Dates: start: 20120502, end: 20120515
  14. HIRNAMIN [Concomitant]
     Route: 048
  15. SEROQUEL [Concomitant]
     Route: 048

REACTIONS (3)
  - WHITE BLOOD CELL COUNT DECREASED [None]
  - NEUTROPHIL COUNT DECREASED [None]
  - PLATELET COUNT DECREASED [None]
